FAERS Safety Report 23782835 (Version 1)
Quarter: 2024Q2

REPORT INFORMATION
  Report Type: Spontaneous
  Country: US (occurrence: US)
  Receive Date: 20240425
  Receipt Date: 20240425
  Transmission Date: 20240716
  Serious: No
  Sender: FDA-Public Use
  Company Number: US-NOVEN PHARMACEUTICALS, INC.-2023-NOV-US000598

PATIENT
  Sex: Male

DRUGS (5)
  1. DAYTRANA [Suspect]
     Active Substance: METHYLPHENIDATE
     Indication: Anger
     Dosage: 20 MG, UNK
     Route: 062
  2. DAYTRANA [Suspect]
     Active Substance: METHYLPHENIDATE
     Indication: Anger
  3. DAYTRANA [Suspect]
     Active Substance: METHYLPHENIDATE
     Indication: Post-traumatic stress disorder
  4. DAYTRANA [Suspect]
     Active Substance: METHYLPHENIDATE
     Indication: Reactive attachment disorder
  5. DAYTRANA [Suspect]
     Active Substance: METHYLPHENIDATE
     Indication: Off label use

REACTIONS (3)
  - Device use issue [Not Recovered/Not Resolved]
  - Off label use [Not Recovered/Not Resolved]
  - No adverse event [Unknown]
